FAERS Safety Report 19661618 (Version 1)
Quarter: 2021Q3

REPORT INFORMATION
  Report Type: Spontaneous
  Country: FR (occurrence: FR)
  Receive Date: 20210805
  Receipt Date: 20210805
  Transmission Date: 20211014
  Serious: Yes (Other)
  Sender: FDA-Public Use
  Company Number: FR-PFIZER INC-202100954404

PATIENT
  Age: 31 Year
  Sex: Male

DRUGS (3)
  1. PREGABALIN. [Suspect]
     Active Substance: PREGABALIN
     Dosage: 50 MG (2 TABLETS OF 25 MG)
     Route: 048
  2. CANNABIS [Concomitant]
     Active Substance: CANNABIS SATIVA SUBSP. INDICA TOP
     Dosage: 7 JOINTS
     Route: 055
  3. TRAMADOL HYDROCHLORIDE. [Suspect]
     Active Substance: TRAMADOL HYDROCHLORIDE
     Dosage: 30 TABLETS OF 50 MG (1500 MG) + 10 TABLETS OF 100 MG (1000 MG). TOTAL OF 2500 MG
     Route: 048

REACTIONS (1)
  - Miosis [Recovered/Resolved]
